FAERS Safety Report 19810717 (Version 1)
Quarter: 2021Q3

REPORT INFORMATION
  Report Type: Report from Study
  Country: DE (occurrence: DE)
  Receive Date: 20210909
  Receipt Date: 20210909
  Transmission Date: 20211014
  Serious: Yes (Hospitalization)
  Sender: FDA-Public Use
  Company Number: DE-ELI_LILLY_AND_COMPANY-DE202107010924

PATIENT
  Age: 73 Year
  Sex: Female
  Weight: 47 kg

DRUGS (6)
  1. ALIMTA [Suspect]
     Active Substance: PEMETREXED DISODIUM
     Indication: NON-SMALL CELL LUNG CANCER
     Dosage: 600 MG, UNKNOWN
     Route: 065
     Dates: start: 20210113
  2. ALIMTA [Suspect]
     Active Substance: PEMETREXED DISODIUM
     Dosage: 730 MG, UNKNOWN
     Route: 042
     Dates: start: 20210701, end: 20210701
  3. PEMBROLIZUMAB. [Concomitant]
     Active Substance: PEMBROLIZUMAB
     Dosage: 200 MILLIGRAM FIRST LINE; FREQUENCY AND ROUTE OF ADMINISTRATION WERE NOT REPORTED
     Route: 042
     Dates: start: 20210701, end: 20210701
  4. DEXAMETHASONE. [Concomitant]
     Active Substance: DEXAMETHASONE
     Indication: PRODUCT USED FOR UNKNOWN INDICATION
     Dosage: 8 MG, BID
     Route: 042
     Dates: start: 20210701
  5. PEMBROLIZUMAB. [Concomitant]
     Active Substance: PEMBROLIZUMAB
     Indication: NON-SMALL CELL LUNG CANCER
     Dosage: 200 MILLIGRAM FIRST LINE; FREQUENCY AND ROUTE OF ADMINISTRATION WERE NOT REPORTED
     Route: 065
     Dates: start: 20210113
  6. DEXAMETHASONE. [Concomitant]
     Active Substance: DEXAMETHASONE
     Dosage: 4 MG, BID
     Route: 042
     Dates: start: 20210702

REACTIONS (1)
  - Ischaemia [Unknown]

NARRATIVE: CASE EVENT DATE: 20210714
